FAERS Safety Report 9463050 (Version 1)
Quarter: 2013Q3

REPORT INFORMATION
  Report Type: Spontaneous
  Country: US (occurrence: US)
  Receive Date: 20130816
  Receipt Date: 20130816
  Transmission Date: 20140515
  Serious: Yes (Hospitalization, Other)
  Sender: FDA-Public Use
  Company Number: US-ABBOTT-13P-163-1132513-00

PATIENT
  Sex: Male
  Weight: 90.8 kg

DRUGS (24)
  1. HUMIRA [Suspect]
     Indication: PSORIATIC ARTHROPATHY
     Dates: start: 2007, end: 2009
  2. HUMIRA [Suspect]
     Dates: start: 201306
  3. NARCOTICS [Suspect]
     Indication: PAIN
  4. BENIGN PROSTATIC HYPERTROPHY MEDICATIONS [Suspect]
     Indication: PAIN
  5. UNKNOWN MEDICATIONS [Concomitant]
     Indication: PRODUCT USED FOR UNKNOWN INDICATION
  6. ONGLYZA [Concomitant]
     Indication: DIABETES MELLITUS
  7. ALBUTEROL [Concomitant]
     Indication: DYSPNOEA
     Dosage: Q4H PRN
  8. GLIPIZIDE XL [Concomitant]
     Indication: PRODUCT USED FOR UNKNOWN INDICATION
  9. OMEPRAZOLE [Concomitant]
     Indication: PRODUCT USED FOR UNKNOWN INDICATION
  10. OXYCODONE [Concomitant]
     Indication: PAIN
     Dosage: 5MG MILD, 10MG MODERATE, OR 15MG SEVERE PAIN QHRS, PRN
  11. MORPHINE SULFATE [Concomitant]
     Indication: PRODUCT USED FOR UNKNOWN INDICATION
     Dosage: DECREASED
  12. MORPHINE SULFATE [Concomitant]
  13. ALLOPURINOL [Concomitant]
     Indication: PRODUCT USED FOR UNKNOWN INDICATION
     Dosage: DECREASED
  14. ALLOPURINOL [Concomitant]
  15. AMITRIPTYLINE [Concomitant]
     Indication: PRODUCT USED FOR UNKNOWN INDICATION
  16. METHOCARBAMOL [Concomitant]
     Indication: PRODUCT USED FOR UNKNOWN INDICATION
  17. GABAPENTIN [Concomitant]
     Indication: PRODUCT USED FOR UNKNOWN INDICATION
  18. PROCHLORPERAZINE [Concomitant]
     Indication: PRODUCT USED FOR UNKNOWN INDICATION
  19. LISINOPRIL [Concomitant]
     Indication: PRODUCT USED FOR UNKNOWN INDICATION
  20. SENOKOT [Concomitant]
     Indication: CONSTIPATION PROPHYLAXIS
  21. SENOKOT [Concomitant]
     Indication: PROPHYLAXIS AGAINST DIARRHOEA
  22. COLACE [Concomitant]
     Indication: CONSTIPATION PROPHYLAXIS
  23. COLACE [Concomitant]
     Indication: CONSTIPATION PROPHYLAXIS
  24. FLEXERIL [Concomitant]
     Indication: MUSCLE SPASMS
     Dosage: 10 MG TID PRN

REACTIONS (29)
  - Pyrexia [Recovered/Resolved]
  - Nephrolithiasis [Unknown]
  - Kidney infection [Recovering/Resolving]
  - Spinal laminectomy [Unknown]
  - Post procedural complication [Unknown]
  - Staphylococcal infection [Recovered/Resolved]
  - Viral sepsis [Unknown]
  - Nephrogenic anaemia [Recovering/Resolving]
  - Renal failure acute [Recovering/Resolving]
  - Renal failure chronic [Recovering/Resolving]
  - Infection [Recovering/Resolving]
  - Renal failure acute [Recovering/Resolving]
  - Rhabdomyolysis [Unknown]
  - Fall [Unknown]
  - Pain [Unknown]
  - Urinary retention [Unknown]
  - Neurogenic bladder [Unknown]
  - Iliotibial band syndrome [Recovering/Resolving]
  - Neuropathy peripheral [Recovering/Resolving]
  - Hypotension [Recovering/Resolving]
  - Injection site pain [Not Recovered/Not Resolved]
  - Injection site pain [Not Recovered/Not Resolved]
  - Weight decreased [Unknown]
  - Walking aid user [Unknown]
  - Spinal disorder [Unknown]
  - Splenic granuloma [Unknown]
  - Anaemia [Unknown]
  - Bursitis [Unknown]
  - Benign prostatic hyperplasia [Unknown]
